FAERS Safety Report 7572704-3 (Version None)
Quarter: 2011Q2

REPORT INFORMATION
  Report Type: 
  Country: None (occurrence: None)
  Receive Date: 20110620
  Receipt Date: 20110603
  Transmission Date: 20111010
  Serious: Yes (Other)
  Sender: FDA-Public Use
  Company Number: 2011MA006746

PATIENT
  Age: 62 Year
  Sex: Female

DRUGS (1)
  1. CLINDAMYCIN PHOSPHATE [Suspect]
     Indication: BRONCHITIS

REACTIONS (5)
  - IRRITABILITY [None]
  - DYSPNOEA [None]
  - UPPER RESPIRATORY TRACT CONGESTION [None]
  - LARYNGEAL OEDEMA [None]
  - CYANOSIS [None]
